FAERS Safety Report 5566485-2 (Version None)
Quarter: 2007Q4

REPORT INFORMATION
  Report Type: 
  Country: None (occurrence: None)
  Receive Date: 20071219
  Receipt Date: 20071023
  Transmission Date: 20080405
  Serious: Yes (Hospitalization, Other)
  Sender: FDA-Public Use
  Company Number: US-PURDUE-USA_2007_0030219

PATIENT
  Sex: Female
  Weight: 109 kg

DRUGS (1)
  1. OXYCONTIN [Suspect]
     Indication: BACK PAIN
     Dosage: 20 MG, BID
     Dates: start: 19991220, end: 20001010

REACTIONS (11)
  - AFFECTIVE DISORDER [None]
  - ANGER [None]
  - DIZZINESS [None]
  - DRUG DEPENDENCE [None]
  - DRUG WITHDRAWAL SYNDROME [None]
  - HEADACHE [None]
  - HOSPITALISATION [None]
  - MENTAL DISORDER [None]
  - MOOD ALTERED [None]
  - NERVOUSNESS [None]
  - SUICIDAL IDEATION [None]
